FAERS Safety Report 8840317 (Version 1)
Quarter: 2012Q4

REPORT INFORMATION
  Report Type: 
  Country: CA (occurrence: CA)
  Receive Date: 20121015
  Receipt Date: 20121015
  Transmission Date: 20130627
  Serious: Yes (Death, Hospitalization)
  Sender: FDA-Public Use
  Company Number: CA-B.I. PHARMACEUTICALS,INC./RIDGEFIELD-2012-CN-02125CN

PATIENT
  Age: 99 Year
  Sex: Female

DRUGS (2)
  1. PRADAX [Suspect]
     Indication: ATRIAL FIBRILLATION
     Dosage: 220 mg
     Dates: start: 20120523, end: 20120907
  2. ASPIRIN [Concomitant]
     Dates: start: 201209

REACTIONS (2)
  - Thrombotic stroke [Fatal]
  - Gastrointestinal haemorrhage [Recovered/Resolved]
